FAERS Safety Report 6645610-6 (Version None)
Quarter: 2010Q1

REPORT INFORMATION
  Report Type: 
  Country: None (occurrence: None)
  Receive Date: 20100319
  Receipt Date: 20100319
  Transmission Date: 20100710
  Serious: Yes (Other)
  Sender: FDA-Public Use
  Company Number: None

PATIENT
  Age: 43 Year
  Sex: Female
  Weight: 102.0593 kg

DRUGS (2)
  1. LEXAPRO [Suspect]
     Indication: ANXIETY
     Dosage: 10 MG 1/DAY PO
     Route: 048
     Dates: start: 20020101, end: 20100311
  2. LEXAPRO [Suspect]
     Indication: URTICARIA
     Dosage: 10 MG 1/DAY PO
     Route: 048
     Dates: start: 20020101, end: 20100311

REACTIONS (2)
  - MUSCLE SPASMS [None]
  - MUSCLE TWITCHING [None]
